FAERS Safety Report 22075696 (Version 1)
Quarter: 2023Q1

REPORT INFORMATION
  Report Type: Spontaneous
  Country: CN (occurrence: CN)
  Receive Date: 20230308
  Receipt Date: 20230308
  Transmission Date: 20230417
  Serious: Yes (Hospitalization)
  Sender: FDA-Public Use
  Company Number: CN-009507513-2303CHN001510

PATIENT
  Age: 52 Year
  Sex: Female
  Weight: 50 kg

DRUGS (3)
  1. KEYTRUDA [Suspect]
     Active Substance: PEMBROLIZUMAB
     Indication: Tongue neoplasm malignant stage unspecified
     Dosage: 200 MG, D1, ONE TIME ONE DAY (ALSO REPORTED AS Q21D)
     Route: 041
     Dates: start: 20230113, end: 20230113
  2. PACLITAXEL [Suspect]
     Active Substance: PACLITAXEL
     Indication: Tongue neoplasm malignant stage unspecified
     Dosage: 400 MG, D1, ONE TIME ONE DAY
     Route: 041
     Dates: start: 20230113, end: 20230113
  3. NEDAPLATIN [Suspect]
     Active Substance: NEDAPLATIN
     Indication: Tongue neoplasm malignant stage unspecified
     Dosage: 160MG, D1, ONE TIME ONE DAY (ALSO REPORTED AS Q21D)
     Route: 041
     Dates: start: 20230113, end: 20230113

REACTIONS (4)
  - Rash papular [Recovering/Resolving]
  - Exfoliative rash [Recovering/Resolving]
  - Skin reaction [Recovering/Resolving]
  - Product use issue [Unknown]

NARRATIVE: CASE EVENT DATE: 20230113
